FAERS Safety Report 5168896-6 (Version None)
Quarter: 2006Q4

REPORT INFORMATION
  Report Type: 
  Country: None (occurrence: None)
  Receive Date: 20061205
  Receipt Date: 20061205
  Transmission Date: 20070319
  Serious: Yes (Death)
  Sender: FDA-Public Use
  Company Number: None

PATIENT
  Age: 54 Year
  Sex: Female

DRUGS (2)
  1. METHOTREXATE [Suspect]
     Indication: OSTEOARTHRITIS
     Dosage: 5MG Q WK SINCE APR OR MAY 2005
  2. METHOTREXATE [Suspect]
     Indication: RHEUMATOID ARTHRITIS
     Dosage: 5MG Q WK SINCE APR OR MAY 2005

REACTIONS (8)
  - ATRIAL FIBRILLATION [None]
  - HAEMATEMESIS [None]
  - LIVER FUNCTION TEST ABNORMAL [None]
  - MOUTH ULCERATION [None]
  - MYELODYSPLASTIC SYNDROME [None]
  - NAUSEA [None]
  - PANCYTOPENIA [None]
  - VOMITING [None]
